FAERS Safety Report 5792950-9 (Version None)
Quarter: 2008Q2

REPORT INFORMATION
  Report Type: 
  Country: None (occurrence: None)
  Receive Date: 20080627
  Receipt Date: 20080619
  Transmission Date: 20081010
  Serious: Yes (Hospitalization)
  Sender: FDA-Public Use
  Company Number: US-AMGEN-QUU288606

PATIENT
  Sex: Female

DRUGS (1)
  1. ENBREL [Suspect]
     Indication: ANKYLOSING SPONDYLITIS
     Dates: start: 20040918

REACTIONS (7)
  - CONTUSION [None]
  - FAECAL INCONTINENCE [None]
  - FALL [None]
  - GASTROENTERITIS SALMONELLA [None]
  - LOSS OF CONSCIOUSNESS [None]
  - RENAL FAILURE [None]
  - URINARY INCONTINENCE [None]
